FAERS Safety Report 6437652-0 (Version None)
Quarter: 2009Q4

REPORT INFORMATION
  Report Type: 
  Country: None (occurrence: None)
  Receive Date: 20091112
  Receipt Date: 20091106
  Transmission Date: 20100525
  Serious: Yes (Other)
  Sender: FDA-Public Use
  Company Number: A0815798A

PATIENT
  Sex: Female

DRUGS (4)
  1. ADVAIR DISKUS 100/50 [Suspect]
     Route: 055
     Dates: start: 20070101
  2. BENADRYL [Concomitant]
  3. MOTRIN [Concomitant]
  4. Z-PAK [Concomitant]

REACTIONS (1)
  - SWOLLEN TONGUE [None]
